FAERS Safety Report 9908625 (Version 1)
Quarter: 2014Q1

REPORT INFORMATION
  Report Type: Spontaneous
  Country: US (occurrence: None)
  Receive Date: 20140212
  Receipt Date: 20140212
  Transmission Date: 20141002
  Serious: Yes (Hospitalization)
  Sender: FDA-Public Use
  Company Number: None

PATIENT
  Age: 28 Year
  Sex: Male
  Weight: 100 kg

DRUGS (1)
  1. PALIPERIDONE [Suspect]
     Indication: POST-TRAUMATIC STRESS DISORDER
     Route: 030
     Dates: start: 20130923, end: 20131017

REACTIONS (6)
  - Dystonia [None]
  - Yawning [None]
  - Trismus [None]
  - Lacrimation increased [None]
  - Blood creatine phosphokinase increased [None]
  - Extrapyramidal disorder [None]
